FAERS Safety Report 7531153-4 (Version None)
Quarter: 2011Q2

REPORT INFORMATION
  Report Type: 
  Country: None (occurrence: None)
  Receive Date: 20110527
  Receipt Date: 20110519
  Transmission Date: 20111010
  Serious: Yes (Hospitalization)
  Sender: FDA-Public Use
  Company Number: WAES 1105USA02975

PATIENT
  Age: 46 Year
  Sex: Male

DRUGS (3)
  1. LOPINAVIR/RITONAVIR [Suspect]
     Dates: start: 20110322, end: 20110518
  2. TAB RALTEGRAVIR POTASSIUM [Suspect]
     Indication: HIV INFECTION
     Dates: start: 20110322, end: 20110518
  3. COTRIMAZOLE [Concomitant]

REACTIONS (7)
  - ACUTE ABDOMEN [None]
  - PERITONITIS [None]
  - BLOOD PRESSURE INCREASED [None]
  - VOMITING [None]
  - HICCUPS [None]
  - HEART RATE INCREASED [None]
  - DIARRHOEA [None]
